FAERS Safety Report 15798379 (Version 4)
Quarter: 2020Q3

REPORT INFORMATION
  Report Type: Report from Study
  Country: US (occurrence: US)
  Receive Date: 20190108
  Receipt Date: 20200910
  Transmission Date: 20201102
  Serious: Yes (Other)
  Sender: FDA-Public Use
  Company Number: PHEH2019US000714

PATIENT
  Sex: Female

DRUGS (1)
  1. DUREZOL [Suspect]
     Active Substance: DIFLUPREDNATE
     Indication: PRODUCT USED FOR UNKNOWN INDICATION
     Dosage: UNK
     Route: 065

REACTIONS (8)
  - Vision blurred [Unknown]
  - Eye disorder [Unknown]
  - Macular degeneration [Unknown]
  - Product dose omission issue [Unknown]
  - Blindness [Unknown]
  - Ocular discomfort [Unknown]
  - Malaise [Unknown]
  - Eye contusion [Unknown]
